FAERS Safety Report 14253564 (Version 4)
Quarter: 2018Q1

REPORT INFORMATION
  Report Type: Spontaneous
  Country: US (occurrence: US)
  Receive Date: 20171206
  Receipt Date: 20180328
  Transmission Date: 20180508
  Serious: Yes (Other)
  Sender: FDA-Public Use
  Company Number: PHEH2017US039378

PATIENT
  Sex: Female

DRUGS (1)
  1. ZOFRAN ODT [Suspect]
     Active Substance: ONDANSETRON HYDROCHLORIDE
     Indication: VOMITING IN PREGNANCY
     Dosage: 8 MG, PRN
     Route: 048
     Dates: start: 20090128, end: 20090409

REACTIONS (14)
  - Drug dependence [Unknown]
  - Anhedonia [Unknown]
  - Postpartum haemorrhage [Unknown]
  - Injury [Unknown]
  - Anxiety [Unknown]
  - Pain [Unknown]
  - Migraine [Unknown]
  - Glucose tolerance impaired in pregnancy [Unknown]
  - Emotional distress [Unknown]
  - Back pain [Unknown]
  - Maternal exposure during pregnancy [Unknown]
  - Obesity [Unknown]
  - Tendonitis [Unknown]
  - Product use issue [Unknown]
